FAERS Safety Report 18264429 (Version 1)
Quarter: 2020Q3

REPORT INFORMATION
  Report Type: Report from Study
  Country: CO (occurrence: CO)
  Receive Date: 20200914
  Receipt Date: 20200914
  Transmission Date: 20201103
  Serious: Yes (Other)
  Sender: FDA-Public Use
  Company Number: NVSC2019CO041404

PATIENT
  Sex: Male
  Weight: 53 kg

DRUGS (2)
  1. VOTRIENT [Suspect]
     Active Substance: PAZOPANIB HYDROCHLORIDE
     Indication: SOFT TISSUE SARCOMA
     Dosage: 800 MG, QD
     Route: 048
     Dates: start: 201811
  2. VOTRIENT [Suspect]
     Active Substance: PAZOPANIB HYDROCHLORIDE
     Dosage: 400 MG, Q12H
     Route: 048

REACTIONS (11)
  - Pain [Unknown]
  - Hypokinesia [Unknown]
  - General physical health deterioration [Unknown]
  - Insomnia [Unknown]
  - Malignant neoplasm progression [Unknown]
  - Limb discomfort [Unknown]
  - Gait inability [Unknown]
  - Pain in extremity [Unknown]
  - Decreased appetite [Unknown]
  - Soft tissue sarcoma [Unknown]
  - Inappropriate schedule of product administration [Unknown]
